FAERS Safety Report 26026688 (Version 1)
Quarter: 2025Q4

REPORT INFORMATION
  Report Type: Spontaneous
  Country: JP (occurrence: JP)
  Receive Date: 20251111
  Receipt Date: 20251111
  Transmission Date: 20260117
  Serious: No
  Sender: PFIZER
  Company Number: JP-PFIZER INC-202500197352

PATIENT
  Age: 14 Year
  Sex: Male
  Weight: 45.1 kg

DRUGS (2)
  1. NGENLA [Suspect]
     Active Substance: SOMATROGON-GHLA
     Indication: Short stature
     Dosage: 12 MG, WEEKLY
     Route: 058
     Dates: start: 20250109
  2. NGENLA [Suspect]
     Active Substance: SOMATROGON-GHLA
     Indication: Growth hormone deficiency
     Dosage: 26 MG, WEEKLY
     Route: 058
     Dates: end: 20251023

REACTIONS (1)
  - Injection site pain [Recovered/Resolved]

NARRATIVE: CASE EVENT DATE: 20250930
